FAERS Safety Report 12109928 (Version 6)
Quarter: 2018Q3

REPORT INFORMATION
  Report Type: Report from Study
  Country: IT (occurrence: IT)
  Receive Date: 20160224
  Receipt Date: 20180912
  Transmission Date: 20181010
  Serious: Yes (Hospitalization)
  Sender: FDA-Public Use
  Company Number: IT-ROCHE-1713766

PATIENT
  Age: 65 Year
  Sex: Male
  Weight: 71 kg

DRUGS (21)
  1. PARACETAMOLO [Concomitant]
     Active Substance: ACETAMINOPHEN
     Indication: PREMEDICATION
     Route: 048
     Dates: start: 20160216, end: 20160217
  2. PREDNISONE. [Concomitant]
     Active Substance: PREDNISONE
     Indication: CHRONIC LYMPHOCYTIC LEUKAEMIA
     Route: 048
     Dates: start: 20160212, end: 20160219
  3. ALLOPURINOL. [Concomitant]
     Active Substance: ALLOPURINOL
     Route: 048
     Dates: start: 20160226, end: 20160228
  4. PARACETAMOLO [Concomitant]
     Active Substance: ACETAMINOPHEN
     Route: 048
     Dates: start: 20160308, end: 20160308
  5. METILPREDNISOLONE [Concomitant]
     Active Substance: METHYLPREDNISOLONE
     Indication: PREMEDICATION
     Route: 042
     Dates: start: 20160216, end: 20160216
  6. PERFALGAN [Concomitant]
     Active Substance: ACETAMINOPHEN
     Indication: PYREXIA
     Route: 042
     Dates: start: 20160218, end: 20160218
  7. ZARZIO [Concomitant]
     Active Substance: FILGRASTIM
     Route: 058
     Dates: start: 20160307, end: 20160307
  8. ALLOPURINOL. [Concomitant]
     Active Substance: ALLOPURINOL
     Route: 048
     Dates: start: 20160307
  9. CIPROXIN [Concomitant]
     Active Substance: CIPROFLOXACIN
     Indication: ANTIBIOTIC PROPHYLAXIS
     Route: 048
     Dates: start: 20160218, end: 20160308
  10. RAMIPRIL. [Concomitant]
     Active Substance: RAMIPRIL
     Indication: HYPERTENSION
     Route: 048
     Dates: start: 20160214, end: 20160307
  11. MUSCORIL [Concomitant]
     Active Substance: THIOCOLCHICOSIDE
     Indication: NECK PAIN
     Route: 065
     Dates: start: 201608, end: 201608
  12. OBINUTUZUMAB. [Suspect]
     Active Substance: OBINUTUZUMAB
     Indication: CHRONIC LYMPHOCYTIC LEUKAEMIA
     Dosage: THE LAST DOSE PRIOR TO THE EVENTS WAS ADMINISTERED ON 17/FEB/2016 AT 09:30 (900MG)
     Route: 042
     Dates: end: 20160216
  13. URBASON [Concomitant]
     Active Substance: METHYLPREDNISOLONE
     Indication: PYREXIA
     Route: 042
     Dates: start: 20160218, end: 20160218
  14. METILPREDNISOLONE [Concomitant]
     Active Substance: METHYLPREDNISOLONE
     Route: 042
     Dates: start: 20160308, end: 20160308
  15. TRIMETON [Concomitant]
     Active Substance: CHLORPHENIRAMINE MALEATE
     Indication: PREMEDICATION
     Route: 042
     Dates: start: 20160216, end: 20160217
  16. ACICLOVIR [Concomitant]
     Active Substance: ACYCLOVIR
     Indication: ANTIVIRAL PROPHYLAXIS
     Route: 048
     Dates: start: 20160213
  17. TRIMETON [Concomitant]
     Active Substance: CHLORPHENIRAMINE MALEATE
     Route: 042
     Dates: start: 20160308, end: 20160308
  18. PANTOPRAZOLO [Concomitant]
     Active Substance: PANTOPRAZOLE SODIUM
     Indication: PROPHYLAXIS AGAINST GASTROINTESTINAL ULCER
     Route: 048
     Dates: start: 20160214
  19. ALLOPURINOL. [Concomitant]
     Active Substance: ALLOPURINOL
     Indication: PROPHYLAXIS
     Route: 048
     Dates: start: 20160112, end: 20160222
  20. PLASIL [Concomitant]
     Active Substance: METOCLOPRAMIDE HYDROCHLORIDE
     Indication: VOMITING
     Route: 042
     Dates: start: 20160216, end: 20160216
  21. UGUROL [Concomitant]
     Active Substance: TRANEXAMIC ACID
     Indication: EPISTAXIS
     Route: 048
     Dates: start: 20160219, end: 20160219

REACTIONS (3)
  - Thrombocytopenia [Recovered/Resolved with Sequelae]
  - White blood cell count decreased [Recovered/Resolved with Sequelae]
  - Anaemia [Recovered/Resolved with Sequelae]

NARRATIVE: CASE EVENT DATE: 20160218
